FAERS Safety Report 9950093 (Version 1)
Quarter: 2014Q1

REPORT INFORMATION
  Report Type: Report from Study
  Country: US (occurrence: US)
  Receive Date: 20140304
  Receipt Date: 20140304
  Transmission Date: 20141002
  Serious: No
  Sender: FDA-Public Use
  Company Number: US-ABBVIE-13P-163-1069360-00

PATIENT
  Age: 53 Year
  Sex: Male

DRUGS (15)
  1. HUMIRA [Suspect]
     Indication: CROHN^S DISEASE
  2. HUMIRA [Suspect]
  3. TRAZODONE [Concomitant]
     Indication: PRODUCT USED FOR UNKNOWN INDICATION
     Dosage: 100 MG QHS
  4. RISPERDAL [Concomitant]
     Indication: PRODUCT USED FOR UNKNOWN INDICATION
  5. AMBIEN [Concomitant]
     Indication: INSOMNIA
     Dosage: 10MG QHS
  6. KLONOPIN [Concomitant]
     Indication: RESTLESS LEGS SYNDROME
  7. CELEXA [Concomitant]
     Indication: PRODUCT USED FOR UNKNOWN INDICATION
  8. BENTYL [Concomitant]
     Indication: ABDOMINAL DISTENSION
  9. SEROQUEL [Concomitant]
     Indication: PRODUCT USED FOR UNKNOWN INDICATION
  10. LAMICTAL [Concomitant]
     Indication: PRODUCT USED FOR UNKNOWN INDICATION
  11. REQUIP [Concomitant]
     Indication: RESTLESS LEGS SYNDROME
  12. OXYCODONE HCL [Concomitant]
     Indication: PRODUCT USED FOR UNKNOWN INDICATION
  13. SULFAZINE [Concomitant]
     Indication: PRODUCT USED FOR UNKNOWN INDICATION
     Dosage: ONLY TAKED 4 A DAY
  14. BUDESONIDE [Concomitant]
     Indication: PRODUCT USED FOR UNKNOWN INDICATION
  15. FENTYANYL [Concomitant]
     Indication: PRODUCT USED FOR UNKNOWN INDICATION

REACTIONS (2)
  - Respiratory disorder [Not Recovered/Not Resolved]
  - Arthralgia [Not Recovered/Not Resolved]
